FAERS Safety Report 12722291 (Version 1)
Quarter: 2016Q3

REPORT INFORMATION
  Report Type: Spontaneous
  Country: JP (occurrence: JP)
  Receive Date: 20160907
  Receipt Date: 20160907
  Transmission Date: 20161109
  Serious: Yes (Other)
  Sender: FDA-Public Use
  Company Number: JP-PFIZER INC-2016413883

PATIENT
  Sex: Female

DRUGS (2)
  1. LYRICA [Suspect]
     Active Substance: PREGABALIN
     Indication: SCIATICA
     Dosage: 50 MG, 2X/DAY IN THE MORNING AND EVENING
     Route: 048
  2. FEMARA [Suspect]
     Active Substance: LETROZOLE
     Route: 048

REACTIONS (3)
  - Erythema [Unknown]
  - Tachycardia [Unknown]
  - Somnolence [Unknown]
